FAERS Safety Report 22539237 (Version 1)
Quarter: 2023Q2

REPORT INFORMATION
  Report Type: Spontaneous
  Country: JP (occurrence: JP)
  Receive Date: 20230609
  Receipt Date: 20230609
  Transmission Date: 20230722
  Serious: Yes (Other)
  Sender: FDA-Public Use
  Company Number: JP-BRISTOL-MYERS SQUIBB COMPANY-2022-048738

PATIENT

DRUGS (1)
  1. TRIAMCINOLONE ACETONIDE [Suspect]
     Active Substance: TRIAMCINOLONE ACETONIDE
     Indication: Temporomandibular joint syndrome
     Dosage: A TOTAL OF 0.8 ML WAS INJECTED INTO THE BILATERAL MASSETER MUSCLES IN 0.4 ML INCREMENTS FOR 2 CONSEC
     Route: 030

REACTIONS (2)
  - Angina pectoris [Unknown]
  - Off label use [Unknown]
